FAERS Safety Report 10052797 (Version 3)
Quarter: 2014Q2

REPORT INFORMATION
  Report Type: Spontaneous
  Country: US (occurrence: US)
  Receive Date: 20140402
  Receipt Date: 20140421
  Transmission Date: 20141212
  Serious: Yes (Hospitalization)
  Sender: FDA-Public Use
  Company Number: US-BAXTER-2014BAX016006

PATIENT
  Sex: Male
  Weight: 91.36 kg

DRUGS (4)
  1. DIANEAL LOW CALCIUM [Suspect]
     Indication: RENAL FAILURE CHRONIC
     Route: 033
     Dates: start: 2013, end: 201404
  2. DIANEAL LOW CALCIUM [Suspect]
     Route: 033
     Dates: start: 201404
  3. DIANEAL LOW CALCIUM [Suspect]
     Indication: RENAL FAILURE CHRONIC
     Route: 033
     Dates: start: 2013, end: 201404
  4. DIANEAL LOW CALCIUM [Suspect]
     Route: 033
     Dates: start: 201404

REACTIONS (3)
  - Dysarthria [Recovered/Resolved]
  - Malaise [Recovered/Resolved]
  - Pain [Unknown]
